FAERS Safety Report 6588820-9 (Version None)
Quarter: 2010Q1

REPORT INFORMATION
  Report Type: 
  Country: None (occurrence: None)
  Receive Date: 20100218
  Receipt Date: 20100212
  Transmission Date: 20100710
  Serious: Yes (Life-Threatening, Hospitalization)
  Sender: FDA-Public Use
  Company Number: A0633744A

PATIENT
  Age: 51 Year
  Sex: Male

DRUGS (10)
  1. EPZICOM [Suspect]
     Indication: HIV INFECTION
     Dosage: 1TAB PER DAY
     Route: 048
     Dates: end: 20070103
  2. LAMIVUDINE [Suspect]
     Indication: ACQUIRED IMMUNODEFICIENCY SYNDROME
     Route: 048
     Dates: start: 19990901
  3. ABACAVIR [Suspect]
     Indication: ACQUIRED IMMUNODEFICIENCY SYNDROME
     Route: 048
     Dates: start: 19990901
  4. COMBIVIR [Suspect]
  5. EPIVIR [Suspect]
  6. REYATAZ [Concomitant]
  7. NORVIR [Concomitant]
  8. CLONAZEPAM [Concomitant]
  9. TERAZOSIN HCL [Concomitant]
  10. DOXEPIN HCL [Concomitant]

REACTIONS (17)
  - BLOOD PHOSPHORUS DECREASED [None]
  - BLOOD PRESSURE INCREASED [None]
  - DRUG TOXICITY [None]
  - DYSPNOEA [None]
  - EXERCISE TOLERANCE DECREASED [None]
  - GAIT DISTURBANCE [None]
  - HEART RATE INCREASED [None]
  - HYPERVENTILATION [None]
  - HYPOXIA [None]
  - MITOCHONDRIAL CYTOPATHY [None]
  - MITOCHONDRIAL DNA DELETION [None]
  - MITOCHONDRIAL DNA DEPLETION [None]
  - MITOCHONDRIAL TOXICITY [None]
  - PALPITATIONS [None]
  - RESPIRATORY FAILURE [None]
  - SPEECH DISORDER [None]
  - THERAPEUTIC AGENT TOXICITY [None]
